FAERS Safety Report 11563966 (Version 1)
Quarter: 2015Q3

REPORT INFORMATION
  Report Type: Spontaneous
  Country: US (occurrence: US)
  Receive Date: 20150928
  Receipt Date: 20150928
  Transmission Date: 20151125
  Serious: Yes (Other)
  Sender: FDA-Public Use
  Company Number: US-APOTEX-2015AP013021

PATIENT
  Age: 42 Year
  Sex: Female

DRUGS (2)
  1. LOPERAMIDE [Suspect]
     Active Substance: LOPERAMIDE
     Indication: PAIN
     Dosage: 120-140 MG (60-70 TABLETS) OF LOPERAMIDE DAILY FOR ONE WEEK
  2. CIMETIDINE TABLETS USP [Suspect]
     Active Substance: CIMETIDINE
     Indication: PRODUCT USED FOR UNKNOWN INDICATION
     Dosage: UPTO 6 TABLETS PER DAY

REACTIONS (11)
  - Drug abuse [Recovered/Resolved]
  - Anxiety [None]
  - Vomiting [None]
  - Diarrhoea [None]
  - Piloerection [None]
  - Drug withdrawal syndrome [Recovered/Resolved]
  - Drug interaction [Recovered/Resolved]
  - Restlessness [None]
  - Drug screen positive [None]
  - Food interaction [Recovered/Resolved]
  - Mydriasis [None]
